FAERS Safety Report 7221779-X (Version None)
Quarter: 2011Q1

REPORT INFORMATION
  Report Type: 
  Country: None (occurrence: None)
  Receive Date: 20110112
  Receipt Date: 20101230
  Transmission Date: 20110831
  Serious: Yes (Other)
  Sender: FDA-Public Use
  Company Number: US-ELI_LILLY_AND_COMPANY-US201101000253

PATIENT
  Sex: Male

DRUGS (1)
  1. ALIMTA [Suspect]
     Indication: OESOPHAGEAL CARCINOMA
     Dosage: UNK, UNK
     Dates: start: 20100920

REACTIONS (3)
  - HYPOPHAGIA [None]
  - OFF LABEL USE [None]
  - FAILURE TO THRIVE [None]
